FAERS Safety Report 4534796-5 (Version None)
Quarter: 2004Q4

REPORT INFORMATION
  Report Type: 
  Country: None (occurrence: None)
  Receive Date: 20041222
  Receipt Date: 20040315
  Transmission Date: 20050328
  Serious: No
  Sender: FDA-Public Use
  Company Number: US-BRISTOL-MYERS SQUIBB COMPANY-12533048

PATIENT
  Age: 55 Year
  Sex: Male
  Weight: 87 kg

DRUGS (2)
  1. PRAVACHOL [Suspect]
     Indication: BLOOD CHOLESTEROL INCREASED
     Dosage: DOSAGE FORM = TABLET
     Route: 048
     Dates: start: 20030101, end: 20040101
  2. DECADRON [Concomitant]

REACTIONS (1)
  - CLUSTER HEADACHE [None]
